FAERS Safety Report 21880956 (Version 1)
Quarter: 2023Q1

REPORT INFORMATION
  Report Type: Spontaneous
  Country: US (occurrence: US)
  Receive Date: 20230118
  Receipt Date: 20230118
  Transmission Date: 20230418
  Serious: No
  Sender: FDA-Public Use
  Company Number: US-JNJFOC-20230127141

PATIENT
  Sex: Male
  Weight: 68.100 kg

DRUGS (2)
  1. SPRAVATO [Suspect]
     Active Substance: ESKETAMINE
     Indication: Depression
     Route: 065
     Dates: start: 202212
  2. SPRAVATO [Suspect]
     Active Substance: ESKETAMINE
     Indication: Anxiety

REACTIONS (2)
  - Off label use [Unknown]
  - Chest pain [Unknown]
